FAERS Safety Report 4777933-X (Version None)
Quarter: 2005Q3

REPORT INFORMATION
  Report Type: 
  Country: None (occurrence: None)
  Receive Date: 20050921
  Receipt Date: 20050905
  Transmission Date: 20060218
  Serious: Yes (Hospitalization)
  Sender: FDA-Public Use
  Company Number: DSA_26960_2005

PATIENT
  Age: 60 Year
  Sex: Male

DRUGS (1)
  1. TAVOR [Suspect]
     Dosage: 200 MG ONCE PO
     Route: 048
     Dates: start: 20050905, end: 20050905

REACTIONS (4)
  - BLOOD CREATINE PHOSPHOKINASE INCREASED [None]
  - DEPRESSED LEVEL OF CONSCIOUSNESS [None]
  - INTENTIONAL MISUSE [None]
  - OVERDOSE [None]
